FAERS Safety Report 22539159 (Version 2)
Quarter: 2023Q2

REPORT INFORMATION
  Report Type: Spontaneous
  Country: NL (occurrence: NL)
  Receive Date: 20230609
  Receipt Date: 20230620
  Transmission Date: 20230722
  Serious: Yes (Hospitalization)
  Sender: FDA-Public Use
  Company Number: NL-LRB-00882258

PATIENT
  Sex: Female
  Weight: 56 kg

DRUGS (1)
  1. CIPROFLOXACIN [Suspect]
     Active Substance: CIPROFLOXACIN
     Indication: Cystitis
     Dosage: 500 MILLIGRAM, TWO TIMES A DAY (2X PER DAG 1 STUK)
     Route: 065
     Dates: start: 20230510

REACTIONS (3)
  - Muscular weakness [Not Recovered/Not Resolved]
  - Fall [Unknown]
  - Gait disturbance [Unknown]
